FAERS Safety Report 5262369-8 (Version None)
Quarter: 2007Q1

REPORT INFORMATION
  Report Type: 
  Country: None (occurrence: None)
  Receive Date: 20070308
  Receipt Date: 20070221
  Transmission Date: 20070707
  Serious: Yes (Death, Other)
  Sender: FDA-Public Use
  Company Number: 15766

PATIENT
  Age: 26 Year
  Sex: Female

DRUGS (8)
  1. METHOTREXATE [Suspect]
     Indication: ACUTE LYMPHOCYTIC LEUKAEMIA
     Dosage: 12 MG PER_CYCLE IT
  2. METHOTREXATE [Suspect]
     Indication: ACUTE LYMPHOCYTIC LEUKAEMIA
  3. CYTARABINE [Suspect]
     Indication: ACUTE LYMPHOCYTIC LEUKAEMIA
     Dosage: 100 MG PER_CYCLE IT
  4. CYTARABINE [Suspect]
     Indication: ACUTE LYMPHOCYTIC LEUKAEMIA
  5. CYCLOPHOSPHAMIDE [Concomitant]
  6. VINCRISTINE [Concomitant]
  7. DOXORUBICIN HCL [Concomitant]
  8. DEXAMETHASONE [Concomitant]

REACTIONS (12)
  - AREFLEXIA [None]
  - FAECAL INCONTINENCE [None]
  - HERPES SIMPLEX [None]
  - LEUKAEMIA RECURRENT [None]
  - LOSS OF PROPRIOCEPTION [None]
  - MYELOPATHY [None]
  - NUCLEAR MAGNETIC RESONANCE IMAGING ABNORMAL [None]
  - OSTEOMYELITIS [None]
  - PARALYSIS FLACCID [None]
  - PARAPLEGIA [None]
  - SEPSIS [None]
  - URINARY INCONTINENCE [None]
